FAERS Safety Report 5299075-X (Version None)
Quarter: 2007Q2

REPORT INFORMATION
  Report Type: 
  Country: None (occurrence: None)
  Receive Date: 20070417
  Receipt Date: 20070410
  Transmission Date: 20071010
  Serious: Yes (Other)
  Sender: FDA-Public Use
  Company Number: AC2007-0033

PATIENT
  Age: 38 Year
  Sex: Female
  Weight: 62.6 kg

DRUGS (7)
  1. FLOLAN [Suspect]
     Indication: PULMONARY HYPERTENSION
     Dosage: 30NGKM UNKNOWN
     Route: 042
     Dates: start: 20040520
  2. TYLENOL [Concomitant]
     Dosage: 500MG AS REQUIRED
     Route: 048
  3. COUMADIN [Concomitant]
     Route: 048
  4. OXYGEN [Concomitant]
     Dosage: 3L CONTINUOUS
     Route: 045
  5. CYCLOBENZAPRINE HCL [Concomitant]
     Dosage: 5MG THREE TIMES PER DAY
     Route: 048
  6. DIGOXIN [Concomitant]
     Route: 048
  7. BENADRYL [Concomitant]
     Dosage: 25MG AS REQUIRED
     Route: 048

REACTIONS (3)
  - CATHETER RELATED COMPLICATION [None]
  - CATHETER RELATED INFECTION [None]
  - PHARMACEUTICAL PRODUCT COMPLAINT [None]
